FAERS Safety Report 4561931-5 (Version None)
Quarter: 2005Q1

REPORT INFORMATION
  Report Type: 
  Country: None (occurrence: None)
  Receive Date: 20050125
  Receipt Date: 20050113
  Transmission Date: 20050727
  Serious: Yes (Death)
  Sender: FDA-Public Use
  Company Number: 05H-163-0287173-00

PATIENT
  Sex: 0

DRUGS (5)
  1. LEUCOVORIN CALCIUM [Suspect]
     Indication: COLORECTAL CANCER
     Dosage: 200 MG/M2, DAY 1 + DAY 2; REPEATED EVERY 2 WEEKS, INTRAVENOUS INFUSION
     Route: 042
  2. FLUOROURACIL [Suspect]
     Indication: COLORECTAL CANCER
     Dosage: SEE IMAGE
     Route: 040
  3. OXALIPLATIN [Suspect]
     Indication: COLORECTAL CANCER
     Dosage: 85 MG/M2, DAY 1; REPEATED EVERY 2 WEEKS
  4. 5HT3 ANTAGONIST [Concomitant]
  5. DEXAMETHASONE [Concomitant]

REACTIONS (1)
  - SMALL INTESTINAL OBSTRUCTION [None]
